FAERS Safety Report 14014397 (Version 1)
Quarter: 2017Q3

REPORT INFORMATION
  Report Type: Spontaneous
  Country: US (occurrence: US)
  Receive Date: 20170926
  Receipt Date: 20170926
  Transmission Date: 20171128
  Serious: Yes (Other)
  Sender: FDA-Public Use
  Company Number: None

PATIENT
  Age: 58 Year
  Sex: Female
  Weight: 63 kg

DRUGS (5)
  1. SPIRIVA [Suspect]
     Active Substance: TIOTROPIUM BROMIDE MONOHYDRATE
     Indication: ASTHMA
     Dosage: ?          QUANTITY:1 INHALATION(S);?
     Route: 055
     Dates: start: 20170925, end: 20170926
  2. ASPIRIN. [Concomitant]
     Active Substance: ASPIRIN
  3. ALBUTEROL. [Concomitant]
     Active Substance: ALBUTEROL
  4. KEPPRA [Concomitant]
     Active Substance: LEVETIRACETAM
  5. ADVAIR HFA [Concomitant]
     Active Substance: FLUTICASONE PROPIONATE\SALMETEROL XINAFOATE

REACTIONS (1)
  - Tachyarrhythmia [None]

NARRATIVE: CASE EVENT DATE: 20170926
